FAERS Safety Report 16137654 (Version 2)
Quarter: 2019Q2

REPORT INFORMATION
  Report Type: Report from Study
  Country: JP (occurrence: JP)
  Receive Date: 20190401
  Receipt Date: 20190523
  Transmission Date: 20190711
  Serious: Yes (Death, Other)
  Sender: FDA-Public Use
  Company Number: JP-GLAXOSMITHKLINE-JP2019GSK055992

PATIENT
  Age: 78 Year
  Sex: Male

DRUGS (9)
  1. OMEGA-3-ACID ETHYL ESTERS. [Suspect]
     Active Substance: OMEGA-3-ACID ETHYL ESTERS
     Indication: HYPERLIPIDAEMIA
     Dosage: 2 G, UNK
     Route: 048
     Dates: start: 20151003, end: 20180831
  2. RENIVACE [Concomitant]
     Active Substance: ENALAPRIL
     Indication: PRODUCT USED FOR UNKNOWN INDICATION
     Dosage: UNK
     Dates: start: 20070215, end: 20180903
  3. NITRIC ACID [Concomitant]
     Active Substance: NITRIC ACID
  4. XARELTO [Concomitant]
     Active Substance: RIVAROXABAN
     Indication: PRODUCT USED FOR UNKNOWN INDICATION
     Dosage: UNK
     Dates: start: 20150718, end: 20180903
  5. ACE INHIBITOR [Concomitant]
     Active Substance: UNSPECIFIED INGREDIENT
  6. ANTICOAGULANT [Concomitant]
     Active Substance: UNSPECIFIED INGREDIENT
  7. ARTIST [Concomitant]
     Active Substance: CARVEDILOL
     Indication: PRODUCT USED FOR UNKNOWN INDICATION
     Dosage: UNK
     Dates: start: 20070215, end: 20180903
  8. DIURETIC [Concomitant]
     Active Substance: UNSPECIFIED INGREDIENT
  9. LIVALO [Concomitant]
     Active Substance: PITAVASTATIN CALCIUM
     Indication: PRODUCT USED FOR UNKNOWN INDICATION
     Dosage: UNK
     Dates: start: 20150526, end: 20180903

REACTIONS (1)
  - Sudden death [Fatal]

NARRATIVE: CASE EVENT DATE: 20180903
